FAERS Safety Report 4731349-0 (Version None)
Quarter: 2005Q3

REPORT INFORMATION
  Report Type: 
  Country: None (occurrence: None)
  Receive Date: 20050801
  Receipt Date: 20050801
  Transmission Date: 20060218
  Serious: Yes (Life-Threatening, Hospitalization)
  Sender: FDA-Public Use
  Company Number: None

PATIENT
  Age: 74 Year
  Sex: Male
  Weight: 82 kg

DRUGS (2)
  1. WARFARIN     2.5MG [Suspect]
     Indication: ATRIAL FIBRILLATION
     Dosage: 6.25MG  DAILY   ORAL
     Route: 048
     Dates: start: 19960101, end: 20041204
  2. WARFARIN     2.5MG [Suspect]
     Indication: DEEP VEIN THROMBOSIS
     Dosage: 6.25MG  DAILY   ORAL
     Route: 048
     Dates: start: 19960101, end: 20041204

REACTIONS (8)
  - ATRIAL FIBRILLATION [None]
  - CARDIAC FAILURE CONGESTIVE [None]
  - DYSPNOEA [None]
  - GASTROINTESTINAL HAEMORRHAGE [None]
  - HYPOTENSION [None]
  - INTERNATIONAL NORMALISED RATIO INCREASED [None]
  - RETROPERITONEAL HAEMATOMA [None]
  - SHOCK [None]
